FAERS Safety Report 11320492 (Version 2)
Quarter: 2015Q3

REPORT INFORMATION
  Report Type: Spontaneous
  Country: JP (occurrence: JP)
  Receive Date: 20150729
  Receipt Date: 20150812
  Transmission Date: 20151125
  Serious: Yes (Hospitalization)
  Sender: FDA-Public Use
  Company Number: JP-ASTRAZENECA-2015SE70242

PATIENT
  Age: 31456 Day
  Sex: Male
  Weight: 45 kg

DRUGS (2)
  1. NEXIUM [Suspect]
     Active Substance: ESOMEPRAZOLE MAGNESIUM
     Indication: DUODENAL ULCER
     Dosage: 20 MG EVERYDAY IN THE EVENING
     Route: 048
     Dates: start: 20141001, end: 20141112
  2. MALFA [Concomitant]
     Indication: DUODENAL ULCER
     Route: 048
     Dates: start: 20141001, end: 20141029

REACTIONS (2)
  - Hepatitis [Recovered/Resolved]
  - Constipation [Unknown]

NARRATIVE: CASE EVENT DATE: 20141002
